FAERS Safety Report 16061590 (Version 2)
Quarter: 2019Q1

REPORT INFORMATION
  Report Type: Spontaneous
  Country: US (occurrence: US)
  Receive Date: 20190312
  Receipt Date: 20190314
  Transmission Date: 20190418
  Serious: Yes (Disabling, Other)
  Sender: FDA-Public Use
  Company Number: US-PFIZER INC-2019095088

PATIENT
  Age: 59 Year
  Sex: Female

DRUGS (1)
  1. LYRICA [Suspect]
     Active Substance: PREGABALIN
     Indication: FIBROMYALGIA
     Dosage: 125 MG, DAILY [50 MG TABLET IN THE MORNING/1 AT NIGHT AND 25 MG CAPSULE IN THE AFTERNOON]
     Dates: start: 2004

REACTIONS (6)
  - Joint injury [Unknown]
  - Skin abrasion [Unknown]
  - Limb injury [Unknown]
  - Road traffic accident [Unknown]
  - Temporomandibular joint syndrome [Unknown]
  - Product use issue [Unknown]

NARRATIVE: CASE EVENT DATE: 201809
